FAERS Safety Report 9984285 (Version 2)
Quarter: 2014Q1

REPORT INFORMATION
  Report Type: Report from Study
  Country: US (occurrence: US)
  Receive Date: 20140307
  Receipt Date: 20140307
  Transmission Date: 20141002
  Serious: Yes (Other)
  Sender: FDA-Public Use
  Company Number: US-ABBVIE-13P-163-1180715-00

PATIENT
  Age: 69 Year
  Sex: Male

DRUGS (9)
  1. HUMIRA [Suspect]
     Indication: CROHN^S DISEASE
     Dates: start: 20131113
  2. PROBENECID [Concomitant]
     Indication: GOUT
  3. IMODIUM [Concomitant]
     Indication: DIARRHOEA
     Dosage: BEFORE THE 1ST MEAL OF THE DAY AND BEFORE DINNER
  4. FLOMAX [Concomitant]
     Indication: PROSTATIC DISORDER
  5. MULTIVITAMIN [Concomitant]
     Indication: VITAMIN SUPPLEMENTATION
  6. CALCIUM [Concomitant]
     Indication: MINERAL SUPPLEMENTATION
  7. VITAMIN D [Concomitant]
     Indication: VITAMIN SUPPLEMENTATION
  8. VITAMIN B12 [Concomitant]
     Indication: VITAMIN SUPPLEMENTATION
  9. LOMOTIL [Concomitant]
     Indication: DIARRHOEA
     Dosage: BEFORE FIRST MEAL OF THE DAY AND BEFORE DINNER

REACTIONS (1)
  - Basal cell carcinoma [Not Recovered/Not Resolved]
